FAERS Safety Report 9355226 (Version 1)
Quarter: 2013Q2

REPORT INFORMATION
  Report Type: Spontaneous
  Country: US (occurrence: US)
  Receive Date: 20130619
  Receipt Date: 20130619
  Transmission Date: 20140414
  Serious: No
  Sender: FDA-Public Use
  Company Number: US-PFIZER INC-2013181192

PATIENT
  Age: 51 Year
  Sex: Female

DRUGS (4)
  1. XELJANZ [Suspect]
     Indication: RHEUMATOID ARTHRITIS
     Dosage: UNK
     Dates: start: 2013
  2. PLAQUENIL [Suspect]
     Dosage: UNK
  3. PREDNISONE [Concomitant]
     Dosage: 5 MG, UNK
  4. IMURAN [Concomitant]
     Dosage: UNK

REACTIONS (1)
  - Eye disorder [Unknown]
